FAERS Safety Report 16165999 (Version 1)
Quarter: 2019Q2

REPORT INFORMATION
  Report Type: Report from Study
  Country: BR (occurrence: BR)
  Receive Date: 20190406
  Receipt Date: 20190406
  Transmission Date: 20190711
  Serious: Yes (Hospitalization)
  Sender: FDA-Public Use
  Company Number: BR-UCBSA-2019014525

PATIENT
  Age: 33 Year
  Sex: Female
  Weight: 69 kg

DRUGS (4)
  1. CERTOLIZUMAB PEGOL RA [Suspect]
     Active Substance: CERTOLIZUMAB PEGOL
     Indication: RHEUMATOID ARTHRITIS
     Dosage: 400 MG, EV 4 WEEKS
     Route: 058
  2. TRAMAL [Concomitant]
     Active Substance: TRAMADOL
     Indication: MIGRAINE
  3. DEXAMETASONA [Concomitant]
     Active Substance: DEXAMETHASONE
     Indication: DEPRESSION
     Route: 042
  4. TRAMAL [Concomitant]
     Active Substance: TRAMADOL
     Indication: DEPRESSION
     Route: 042

REACTIONS (1)
  - Migraine [Recovered/Resolved]

NARRATIVE: CASE EVENT DATE: 20190321
